FAERS Safety Report 12120785 (Version 1)
Quarter: 2016Q1

REPORT INFORMATION
  Report Type: Spontaneous
  Country: US (occurrence: US)
  Receive Date: 20160226
  Receipt Date: 20160226
  Transmission Date: 20160526
  Serious: No
  Sender: FDA-Public Use
  Company Number: US-ALLERGAN-1311807US

PATIENT
  Sex: Female

DRUGS (3)
  1. LOTEMAX [Concomitant]
     Active Substance: LOTEPREDNOL ETABONATE
     Indication: POSTOPERATIVE CARE
     Dosage: 1 DROP TO BOTH EYES QID
     Route: 047
     Dates: start: 20130801
  2. REFRESH OPTIVE [Suspect]
     Active Substance: CARBOXYMETHYLCELLULOSE SODIUM\GLYCERIN
     Indication: POSTOPERATIVE CARE
     Dosage: 1 DROP TO BOTH EYES SINGLE DOSE
     Route: 047
     Dates: start: 20130803, end: 20130803
  3. FLOXACIN                           /00668101/ [Concomitant]
     Indication: POSTOPERATIVE CARE
     Dosage: 1 DROP BOTH EYES QID
     Route: 047
     Dates: start: 20130801

REACTIONS (2)
  - Product label confusion [Recovered/Resolved]
  - Eye pain [Recovered/Resolved]
